FAERS Safety Report 10948357 (Version 1)
Quarter: 2015Q1

REPORT INFORMATION
  Report Type: Spontaneous
  Country: US (occurrence: None)
  Receive Date: 20150323
  Receipt Date: 20150323
  Transmission Date: 20150721
  Serious: Yes (Hospitalization)
  Sender: FDA-Public Use
  Company Number: None

PATIENT
  Age: 24 Year
  Sex: Female
  Weight: 66.68 kg

DRUGS (20)
  1. MULTIVITAMIN [Concomitant]
     Active Substance: VITAMINS
  2. CLOBETASOL [Concomitant]
     Active Substance: CLOBETASOL
  3. BUPROPION HCL [Concomitant]
     Active Substance: BUPROPION HYDROCHLORIDE
  4. CITALOPRAM [Concomitant]
     Active Substance: CITALOPRAM HYDROBROMIDE
  5. PHYSICAL THERAPY [Concomitant]
  6. ACYCLOVIR. [Concomitant]
     Active Substance: ACYCLOVIR
  7. FOLIC ACID. [Concomitant]
     Active Substance: FOLIC ACID
  8. LORAZEPAM. [Concomitant]
     Active Substance: LORAZEPAM
  9. PREDNISONE. [Concomitant]
     Active Substance: PREDNISONE
  10. CARBOXYMETHYLCELLULOSE-GYCERN [LUBRICATING DROPS] [Concomitant]
  11. WHITE PETROLATUM-MINERAL OIL [Concomitant]
  12. ALLOPURINOL. [Concomitant]
     Active Substance: ALLOPURINOL
  13. PENTOXIFYLLINE. [Concomitant]
     Active Substance: PENTOXIFYLLINE
  14. ABATACEPT [Suspect]
     Active Substance: ABATACEPT
     Indication: CHRONIC GRAFT VERSUS HOST DISEASE
     Dates: start: 20140926, end: 20150227
  15. ATOVAQUONE. [Concomitant]
     Active Substance: ATOVAQUONE
  16. PANTOPRAZOLE [Concomitant]
     Active Substance: PANTOPRAZOLE SODIUM
  17. LEVOTHYROXINE [LEVOXYL] [Concomitant]
  18. METOPROLOL SUCCINATE. [Concomitant]
     Active Substance: METOPROLOL SUCCINATE
  19. POSACONAZOLE [NOXAFIL] [Concomitant]
  20. WARFARIN [Concomitant]
     Active Substance: WARFARIN

REACTIONS (6)
  - Viral upper respiratory tract infection [None]
  - Stomatitis [None]
  - Pneumonia [None]
  - Immunosuppression [None]
  - Toxicity to various agents [None]
  - Pneumonia bacterial [None]

NARRATIVE: CASE EVENT DATE: 20150314
